FAERS Safety Report 9013361 (Version 3)
Quarter: 2013Q2

REPORT INFORMATION
  Report Type: Spontaneous
  Country: BR (occurrence: BR)
  Receive Date: 20130114
  Receipt Date: 20130602
  Transmission Date: 20140414
  Serious: Yes (Disabling)
  Sender: FDA-Public Use
  Company Number: BR-ASTRAZENECA-2012SE86661

PATIENT
  Age: 38 Year
  Sex: Female
  Weight: 78.6 kg

DRUGS (6)
  1. NEXIUM [Suspect]
     Indication: GASTROOESOPHAGEAL REFLUX DISEASE
     Route: 048
     Dates: start: 201210, end: 20121009
  2. NEXIUM [Suspect]
     Indication: GASTROOESOPHAGEAL REFLUX DISEASE
     Route: 048
     Dates: start: 20121013, end: 20130325
  3. NATALE [Concomitant]
     Indication: VITAMIN SUPPLEMENTATION
     Dates: end: 20130325
  4. MACRODANTINA [Concomitant]
     Indication: URINARY TRACT INFECTION
     Route: 048
     Dates: start: 201212
  5. CEFALEXINE [Concomitant]
     Indication: URINARY TRACT INFECTION
     Route: 048
     Dates: start: 201302, end: 201303
  6. CEFTRIAXONE SODIUM [Concomitant]
     Indication: URINARY TRACT INFECTION
     Dates: start: 201303, end: 201303

REACTIONS (6)
  - Exposure during pregnancy [Unknown]
  - Placental disorder [Recovered/Resolved]
  - Gastrooesophageal reflux disease [Recovered/Resolved]
  - Urinary tract infection [Unknown]
  - Weight increased [Unknown]
  - Intentional drug misuse [Recovered/Resolved]
